FAERS Safety Report 18235583 (Version 1)
Quarter: 2020Q3

REPORT INFORMATION
  Report Type: Spontaneous
  Country: FR (occurrence: FR)
  Receive Date: 20200905
  Receipt Date: 20200905
  Transmission Date: 20201103
  Serious: Yes (Hospitalization)
  Sender: FDA-Public Use
  Company Number: FR-TEVA-2020-FR-1822872

PATIENT
  Age: 71 Year
  Sex: Male
  Weight: 74.5 kg

DRUGS (14)
  1. ZOPHREN 8 MG/4 ML, SOLUTION INJECTABLE EN SERINGUE PRE?REMPLIE [Suspect]
     Active Substance: ONDANSETRON
     Indication: VOMITING
     Dosage: 8 MG
     Route: 042
     Dates: start: 20200730, end: 20200803
  2. EMEND [Suspect]
     Active Substance: APREPITANT
     Indication: VOMITING
     Dosage: UNKNOWN
     Route: 048
     Dates: start: 20200801, end: 20200802
  3. OXYCONTIN [Concomitant]
     Active Substance: OXYCODONE HYDROCHLORIDE
  4. PRIMPERAN [Suspect]
     Active Substance: METOCLOPRAMIDE HYDROCHLORIDE
     Indication: VOMITING
     Dosage: 10 MG
     Route: 042
     Dates: start: 20200801, end: 20200801
  5. LEXOMIL [Concomitant]
     Active Substance: BROMAZEPAM
  6. SEROPLEX 10 MG, COMPRIME PELLICULE SECABLE [Concomitant]
     Active Substance: ESCITALOPRAM OXALATE
  7. DOXORUBICINE [Suspect]
     Active Substance: DOXORUBICIN
     Indication: ALVEOLAR SOFT PART SARCOMA
     Dosage: 60 MG/M2
     Route: 042
     Dates: start: 20200729, end: 20200729
  8. SPECIAFOLDINE 5 MG, COMPRIME [Concomitant]
     Active Substance: FOLIC ACID
  9. HOLOXAN [Suspect]
     Active Substance: IFOSFAMIDE
     Indication: ALVEOLAR SOFT PART SARCOMA
     Dosage: 2500 MG/M2
     Route: 042
     Dates: start: 20200729, end: 20200803
  10. SOLUPRED (PREDNISOLONE SODIUM SULFOBENZOATE) [Suspect]
     Active Substance: PREDNISOLONE SODIUM METAZOATE
     Dosage: 40 MG
     Route: 048
     Dates: start: 20200730, end: 20200804
  11. XANAX [Suspect]
     Active Substance: ALPRAZOLAM
     Indication: PREMEDICATION
     Dosage: 0.5 MG
     Route: 048
     Dates: start: 20200801, end: 20200801
  12. TAHOR [Concomitant]
     Active Substance: ATORVASTATIN CALCIUM
  13. PLITICAN [Concomitant]
     Active Substance: ALIZAPRIDE HYDROCHLORIDE
  14. ZYPREXA [Suspect]
     Active Substance: OLANZAPINE
     Indication: VOMITING
     Dosage: 10 MG
     Route: 048
     Dates: start: 20200731, end: 20200802

REACTIONS (4)
  - Toxic encephalopathy [Recovering/Resolving]
  - Tachycardia [Recovered/Resolved]
  - Renal impairment [Not Recovered/Not Resolved]
  - Tremor [Recovered/Resolved]

NARRATIVE: CASE EVENT DATE: 20200801
